FAERS Safety Report 14069381 (Version 2)
Quarter: 2017Q4

REPORT INFORMATION
  Report Type: Spontaneous
  Country: KG (occurrence: KG)
  Receive Date: 20171010
  Receipt Date: 20171117
  Transmission Date: 20180321
  Serious: Yes (Death)
  Sender: FDA-Public Use
  Company Number: KG-JNJFOC-20171003799

PATIENT
  Sex: Male
  Weight: 50 kg

DRUGS (21)
  1. DEXAMETAZON [Concomitant]
     Active Substance: DEXAMETHASONE
     Indication: DETOXIFICATION
     Route: 042
     Dates: start: 20170826, end: 20170826
  2. PYRIDOXINE [Concomitant]
     Active Substance: PYRIDOXINE
     Indication: PROPHYLAXIS
     Route: 048
     Dates: start: 20170504, end: 20170911
  3. BEDAQUILINE [Suspect]
     Active Substance: BEDAQUILINE
     Indication: TUBERCULOSIS
     Route: 048
     Dates: start: 20170519, end: 20170911
  4. CLOFAZIMINE [Suspect]
     Active Substance: CLOFAZIMINE
     Indication: TUBERCULOSIS
     Route: 048
     Dates: start: 20170504, end: 20170911
  5. POTASSIUM OROTATE [Concomitant]
     Indication: BLOOD POTASSIUM DECREASED
     Route: 065
     Dates: start: 20170802, end: 20170812
  6. FERINSOL [Concomitant]
     Indication: ANAEMIA
     Route: 048
     Dates: start: 20170329, end: 20170618
  7. BEDAQUILINE [Suspect]
     Active Substance: BEDAQUILINE
     Indication: TUBERCULOSIS
     Route: 048
     Dates: start: 20170504
  8. LINEZOLID. [Suspect]
     Active Substance: LINEZOLID
     Indication: TUBERCULOSIS
     Route: 048
     Dates: start: 20170504, end: 20170911
  9. CYCLOSERINE. [Suspect]
     Active Substance: CYCLOSERINE
     Indication: TUBERCULOSIS
     Route: 048
  10. MOXIFLOXACIN. [Suspect]
     Active Substance: MOXIFLOXACIN
     Indication: TUBERCULOSIS
     Route: 048
  11. PANANGIN [Concomitant]
     Active Substance: MAGNESIUM ASPARTATE\POTASSIUM ASPARTATE
     Indication: BLOOD POTASSIUM DECREASED
     Route: 042
     Dates: start: 20170721, end: 20170725
  12. KANAMYCIN [Suspect]
     Active Substance: KANAMYCIN\KANAMYCIN A SULFATE
     Indication: TUBERCULOSIS
     Route: 030
     Dates: start: 20170504, end: 20170911
  13. DEXAMETAZON [Concomitant]
     Active Substance: DEXAMETHASONE
     Indication: DETOXIFICATION
     Route: 042
     Dates: start: 20170802, end: 20170812
  14. PROTIONAMIDE [Suspect]
     Active Substance: PROTIONAMIDE
     Indication: TUBERCULOSIS
     Route: 048
     Dates: start: 20170504, end: 20170911
  15. PROTIONAMIDE [Suspect]
     Active Substance: PROTIONAMIDE
     Indication: TUBERCULOSIS
     Route: 048
  16. CYCLOSERINE. [Suspect]
     Active Substance: CYCLOSERINE
     Indication: TUBERCULOSIS
     Route: 048
     Dates: start: 20170504, end: 20170911
  17. MOXIFLOXACIN. [Suspect]
     Active Substance: MOXIFLOXACIN
     Indication: TUBERCULOSIS
     Route: 048
     Dates: start: 20170504, end: 20170911
  18. FUROSEMIDE. [Concomitant]
     Active Substance: FUROSEMIDE
     Indication: OEDEMA
     Route: 042
     Dates: start: 20170823, end: 20170929
  19. ASPARCAM [Concomitant]
     Indication: BLOOD POTASSIUM DECREASED
     Route: 048
     Dates: start: 20170816, end: 20170903
  20. EUPHYLLINA [Concomitant]
     Indication: DYSPNOEA
     Route: 042
     Dates: start: 20170721, end: 20170726
  21. SODIUM THIOSULPHATE [Concomitant]
     Active Substance: SODIUM THIOSULFATE
     Indication: DETOXIFICATION
     Route: 042
     Dates: start: 20170830, end: 20171009

REACTIONS (2)
  - Treatment noncompliance [Fatal]
  - Tuberculosis [Fatal]
